FAERS Safety Report 14913119 (Version 2)
Quarter: 2018Q2

REPORT INFORMATION
  Report Type: Spontaneous
  Country: TW (occurrence: TW)
  Receive Date: 20180518
  Receipt Date: 20180523
  Transmission Date: 20180711
  Serious: Yes (Death, Other)
  Sender: FDA-Public Use
  Company Number: TW-BAYER-2018-090011

PATIENT
  Age: 76 Year
  Sex: Male

DRUGS (3)
  1. TACE [Concomitant]
     Active Substance: CHLOROTRIANISENE
     Dosage: UNK
     Dates: start: 20150603
  2. TACE [Concomitant]
     Active Substance: CHLOROTRIANISENE
     Dosage: UNK
     Dates: start: 20150807
  3. NEXAVAR [Suspect]
     Active Substance: SORAFENIB
     Indication: HEPATOCELLULAR CARCINOMA
     Dosage: 400 MG, BID
     Dates: start: 20141217, end: 20151215

REACTIONS (3)
  - Tumour rupture [Fatal]
  - Hepatocellular carcinoma [Fatal]
  - Bile duct stenosis [None]

NARRATIVE: CASE EVENT DATE: 20150923
